FAERS Safety Report 14339106 (Version 2)
Quarter: 2018Q1

REPORT INFORMATION
  Report Type: Spontaneous
  Country: IT (occurrence: IT)
  Receive Date: 20171230
  Receipt Date: 20180313
  Transmission Date: 20180509
  Serious: Yes (Other)
  Sender: FDA-Public Use
  Company Number: IT-MERCK KGAA-2038044

PATIENT
  Age: 78 Year
  Sex: Male
  Weight: 80 kg

DRUGS (20)
  1. DILATREND [Suspect]
     Active Substance: CARVEDILOL
  2. DILATREND [Suspect]
     Active Substance: CARVEDILOL
  3. DILATREND [Suspect]
     Active Substance: CARVEDILOL
  4. RIVAROXABAN [Suspect]
     Active Substance: RIVAROXABAN
  5. FUROSEMIDE SODIUM [Suspect]
     Active Substance: FUROSEMIDE SODIUM
  6. SPIRONOLACTONE. [Suspect]
     Active Substance: SPIRONOLACTONE
  7. NOVOTHYROX [Suspect]
     Active Substance: LEVOTHYROXINE SODIUM
     Indication: PRODUCT USED FOR UNKNOWN INDICATION
  8. FUROSEMIDE SODIUM [Suspect]
     Active Substance: FUROSEMIDE SODIUM
  9. LEVOTHYROXINE SODIUM. [Suspect]
     Active Substance: LEVOTHYROXINE SODIUM
  10. DILATREND [Suspect]
     Active Substance: CARVEDILOL
  11. DILATREND [Suspect]
     Active Substance: CARVEDILOL
  12. TIOTROPIUM [Suspect]
     Active Substance: TIOTROPIUM
  13. IRBESARTAN. [Suspect]
     Active Substance: IRBESARTAN
  14. ROSUVASTATIN. [Suspect]
     Active Substance: ROSUVASTATIN
  15. ROSUVASTATIN. [Suspect]
     Active Substance: ROSUVASTATIN
  16. RIVAROXABAN [Suspect]
     Active Substance: RIVAROXABAN
  17. LEVOTHYROXINE SODIUM. [Suspect]
     Active Substance: LEVOTHYROXINE SODIUM
  18. DILATREND [Suspect]
     Active Substance: CARVEDILOL
  19. VALSARTAN. [Suspect]
     Active Substance: VALSARTAN
  20. ROSUVASTATIN. [Suspect]
     Active Substance: ROSUVASTATIN

REACTIONS (28)
  - Bundle branch block right [Unknown]
  - Mitral valve incompetence [Unknown]
  - Pulmonary arterial pressure abnormal [Unknown]
  - Type 2 diabetes mellitus [Unknown]
  - Blood thyroid stimulating hormone abnormal [Unknown]
  - Ejection fraction decreased [Unknown]
  - Bundle branch block left [Unknown]
  - Left ventricular dilatation [Unknown]
  - Hypertension [Unknown]
  - Chronic obstructive pulmonary disease [Unknown]
  - Conduction disorder [Unknown]
  - Fractured coccyx [Unknown]
  - Oxygen saturation increased [Unknown]
  - Aortic aneurysm [Unknown]
  - Goitre [Unknown]
  - Dyspnoea [Unknown]
  - Cardiomegaly [Unknown]
  - C-reactive protein abnormal [Unknown]
  - Dyslipidaemia [Unknown]
  - Obstructive airways disorder [Unknown]
  - Oedema peripheral [Unknown]
  - Cardiac failure chronic [Recovering/Resolving]
  - Atrial fibrillation [Unknown]
  - Thyroiditis [Unknown]
  - Ventricular hypokinesia [Unknown]
  - Tricuspid valve incompetence [Unknown]
  - Fall [Unknown]
  - Brain natriuretic peptide abnormal [Unknown]

NARRATIVE: CASE EVENT DATE: 20150722
